FAERS Safety Report 17978640 (Version 1)
Quarter: 2020Q3

REPORT INFORMATION
  Report Type: Spontaneous
  Country: US (occurrence: US)
  Receive Date: 20200703
  Receipt Date: 20200703
  Transmission Date: 20201103
  Serious: No
  Sender: FDA-Public Use
  Company Number: US-SUNOVION-2020SUN001852

PATIENT
  Sex: Female

DRUGS (1)
  1. LATUDA [Suspect]
     Active Substance: LURASIDONE HYDROCHLORIDE
     Indication: BIPOLAR DISORDER
     Dosage: 80 MG UNK
     Route: 048

REACTIONS (4)
  - Amnesia [Not Recovered/Not Resolved]
  - Nervousness [Not Recovered/Not Resolved]
  - Therapy cessation [Unknown]
  - Logorrhoea [Not Recovered/Not Resolved]
